FAERS Safety Report 10330689 (Version 1)
Quarter: 2014Q3

REPORT INFORMATION
  Report Type: Spontaneous
  Country: US (occurrence: None)
  Receive Date: 20140718
  Receipt Date: 20140718
  Transmission Date: 20150326
  Serious: Yes (Hospitalization)
  Sender: FDA-Public Use
  Company Number: None

PATIENT
  Age: 47 Year
  Sex: Female
  Weight: 64.41 kg

DRUGS (1)
  1. LEVOTHYROXINE [Suspect]
     Active Substance: LEVOTHYROXINE
     Indication: THYROID CANCER

REACTIONS (5)
  - Cerebral haemorrhage [None]
  - Epilepsy [None]
  - Convulsion [None]
  - Hypertension [None]
  - Diplopia [None]

NARRATIVE: CASE EVENT DATE: 20140618
